FAERS Safety Report 8331665-X (Version None)
Quarter: 2012Q2

REPORT INFORMATION
  Report Type: 
  Country: None (occurrence: None)
  Receive Date: 20120502
  Receipt Date: 20110921
  Transmission Date: 20120825
  Serious: No
  Sender: FDA-Public Use
  Company Number: US-ASTRAZENECA-2011SE56807

PATIENT
  Age: 82 Year
  Sex: Male

DRUGS (2)
  1. ENTOCORT EC [Suspect]
     Indication: CROHN'S DISEASE
     Route: 048
  2. DIPRIVAN [Suspect]
     Indication: COLONOSCOPY
     Route: 042

REACTIONS (2)
  - AGITATION [None]
  - AMNESIA [None]
